FAERS Safety Report 10104442 (Version 2)
Quarter: 2014Q3

REPORT INFORMATION
  Report Type: Spontaneous
  Country: US (occurrence: US)
  Receive Date: 20140424
  Receipt Date: 20140717
  Transmission Date: 20150326
  Serious: Yes (Other)
  Sender: FDA-Public Use
  Company Number: US-TEVA-477289USA

PATIENT
  Sex: Female

DRUGS (2)
  1. PARAGARD T380A [Suspect]
     Active Substance: COPPER
     Indication: CONTRACEPTION
     Route: 015
     Dates: start: 2008
  2. PARAGARD T380A [Suspect]
     Active Substance: COPPER
     Route: 015

REACTIONS (2)
  - Precancerous cells present [Unknown]
  - Cervix disorder [Unknown]
